FAERS Safety Report 24406225 (Version 1)
Quarter: 2024Q4

REPORT INFORMATION
  Report Type: Spontaneous
  Country: FR (occurrence: FR)
  Receive Date: 20241007
  Receipt Date: 20241007
  Transmission Date: 20250115
  Serious: Yes (Other)
  Sender: PFIZER
  Company Number: None

PATIENT
  Age: 41 Year
  Sex: Female

DRUGS (5)
  1. PACLITAXEL [Suspect]
     Active Substance: PACLITAXEL
     Indication: Breast cancer
     Dosage: 135 MG, CYCLIC
     Route: 042
     Dates: start: 20230925, end: 20230925
  2. PACLITAXEL [Suspect]
     Active Substance: PACLITAXEL
     Dosage: 135 MG, CYCLIC
     Route: 042
     Dates: start: 20231005, end: 20231005
  3. PACLITAXEL [Suspect]
     Active Substance: PACLITAXEL
     Dosage: 135 MG, CYCLIC
     Route: 042
     Dates: start: 20231012, end: 20231012
  4. PACLITAXEL [Suspect]
     Active Substance: PACLITAXEL
     Dosage: 135 MG, CYCLIC
     Route: 042
     Dates: start: 20231026, end: 20231026
  5. OXYCODONE HYDROCHLORIDE [Concomitant]
     Active Substance: OXYCODONE HYDROCHLORIDE

REACTIONS (4)
  - Hot flush [Recovered/Resolved]
  - Dyspnoea [Recovered/Resolved]
  - Malaise [Recovered/Resolved]
  - Chills [Recovered/Resolved]

NARRATIVE: CASE EVENT DATE: 20231026
